FAERS Safety Report 8505831-4 (Version None)
Quarter: 2012Q3

REPORT INFORMATION
  Report Type: 
  Country: None (occurrence: None)
  Receive Date: 20120702
  Receipt Date: 20120620
  Transmission Date: 20120928
  Serious: Yes (Death)
  Sender: FDA-Public Use
  Company Number: DSA_58120_2012

PATIENT

DRUGS (3)
  1. LEUCOVORIN CALCIUM [Suspect]
     Indication: COLON CANCER
     Dosage: (20 MG/M2 INTRAVENOUS BOLUOS)
     Route: 040
  2. FLUOROURACIL [Suspect]
     Indication: COLON CANCER
     Dosage: (425 MG/M2 INTRAVENOUS BOLUS)
  3. LEVAMISOLE [Suspect]
     Indication: COLON CANCER
     Dosage: (50 MG)

REACTIONS (1)
  - FEBRILE NEUTROPENIA [None]
